FAERS Safety Report 6519565-9 (Version None)
Quarter: 2009Q4

REPORT INFORMATION
  Report Type: 
  Country: None (occurrence: None)
  Receive Date: 20091228
  Receipt Date: 20091218
  Transmission Date: 20100525
  Serious: Yes (Hospitalization, Other)
  Sender: FDA-Public Use
  Company Number: US-ABBOTT-09P-163-0615653-00

PATIENT
  Sex: Male
  Weight: 79.45 kg

DRUGS (12)
  1. HUMIRA [Suspect]
     Indication: RHEUMATOID ARTHRITIS
     Dates: start: 20061201, end: 20091015
  2. HUMIRA [Suspect]
     Indication: PSORIATIC ARTHROPATHY
  3. COZAAR [Concomitant]
     Indication: HYPERTENSION
  4. AMLODIPINE [Concomitant]
     Indication: HYPERTENSION
  5. LODINE [Concomitant]
     Indication: RHEUMATOID ARTHRITIS
  6. DOXAZOSIN MESYLATE [Concomitant]
     Indication: BENIGN PROSTATIC HYPERPLASIA
  7. TEMAZEPAM [Concomitant]
     Indication: RESTLESS LEGS SYNDROME
  8. ASPIRIN [Concomitant]
     Indication: CARDIOVASCULAR EVENT PROPHYLAXIS
  9. CO Q10 [Concomitant]
     Indication: ROUTINE HEALTH MAINTENANCE
  10. VITAMIN D [Concomitant]
     Indication: VITAMIN SUPPLEMENTATION
  11. VITAMINS [Concomitant]
     Indication: VITAMIN SUPPLEMENTATION
  12. CALCIUM [Concomitant]
     Indication: MINERAL SUPPLEMENTATION

REACTIONS (6)
  - CARDIAC DISORDER [None]
  - ERYTHEMA [None]
  - LOCAL SWELLING [None]
  - OEDEMA PERIPHERAL [None]
  - RASH MACULAR [None]
  - STREPTOCOCCAL INFECTION [None]
